FAERS Safety Report 11757639 (Version 1)
Quarter: 2015Q4

REPORT INFORMATION
  Report Type: Spontaneous
  Country: US (occurrence: None)
  Receive Date: 20151119
  Receipt Date: 20151119
  Transmission Date: 20160304
  Serious: Yes (Other)
  Sender: FDA-Public Use
  Company Number: None

PATIENT
  Age: 62 Year
  Sex: Male

DRUGS (1)
  1. SOVALDI [Suspect]
     Active Substance: SOFOSBUVIR
     Dosage: STRENGTH:  400

REACTIONS (3)
  - Insomnia [None]
  - Headache [None]
  - White blood cell count decreased [None]

NARRATIVE: CASE EVENT DATE: 20151117
